FAERS Safety Report 8504144-4 (Version None)
Quarter: 2012Q2

REPORT INFORMATION
  Report Type: 
  Country: None (occurrence: None)
  Receive Date: 20120405
  Receipt Date: 20090722
  Transmission Date: 20120825
  Serious: Yes (Hospitalization)
  Sender: FDA-Public Use
  Company Number: PHEH2009US08146

PATIENT
  Age: 77 Year
  Sex: Female
  Weight: 64.9 kg

DRUGS (6)
  1. RECLAST [Suspect]
     Dosage: 5 MG INFUSION, INFUSION
     Dates: start: 20090624
  2. CLONIDINE [Concomitant]
  3. AMBIEN [Concomitant]
  4. SYNTHROID [Concomitant]
  5. MULTIVITAMINS (ASCORBIC ACID, ERGOCALCIFEROL, FOLIC ACID, NICOTINAMIDE [Concomitant]
  6. TOPROL-XL [Concomitant]

REACTIONS (1)
  - BLOOD CREATININE INCREASED [None]
